FAERS Safety Report 5928600-8 (Version None)
Quarter: 2008Q4

REPORT INFORMATION
  Report Type: 
  Country: None (occurrence: None)
  Receive Date: 20081023
  Receipt Date: 20081016
  Transmission Date: 20090506
  Serious: Yes (Hospitalization)
  Sender: FDA-Public Use
  Company Number: BE-WATSON-2008-06197

PATIENT
  Age: 65 Year
  Sex: Female

DRUGS (8)
  1. ESTRADIOL (WATSON LABORATORIES) [Suspect]
     Indication: DRUG USE FOR UNKNOWN INDICATION
     Dosage: 0.5 MG, DAILY
     Route: 061
  2. TACROLIMUS [Suspect]
     Indication: DRUG USE FOR UNKNOWN INDICATION
     Dosage: 9 MG, DAILY
     Route: 065
  3. MYCOPHENOLIC ACID [Concomitant]
     Indication: DRUG USE FOR UNKNOWN INDICATION
     Dosage: 540 MG, DAILY
     Route: 065
  4. PREDNISOLONE [Concomitant]
     Indication: DRUG USE FOR UNKNOWN INDICATION
     Dosage: 4 MG, DAILY
     Route: 065
  5. LISINOPRIL [Concomitant]
     Indication: DRUG USE FOR UNKNOWN INDICATION
     Dosage: 20 MG, DAILY
     Route: 065
  6. ATORVASTATIN CALCIUM [Concomitant]
     Indication: DRUG USE FOR UNKNOWN INDICATION
     Dosage: 10 MG, DAILY
     Route: 065
  7. L-THYROXINE                        /00068001/ [Concomitant]
     Indication: DRUG USE FOR UNKNOWN INDICATION
     Dosage: 100 MG, DAILY
     Route: 065
  8. ALPRAZOLAM [Concomitant]
     Indication: DRUG USE FOR UNKNOWN INDICATION
     Dosage: 0.5 MG, DAILY
     Route: 065

REACTIONS (2)
  - COMPLICATIONS OF TRANSPLANTED KIDNEY [None]
  - INHIBITORY DRUG INTERACTION [None]
